FAERS Safety Report 13500370 (Version 4)
Quarter: 2017Q2

REPORT INFORMATION
  Report Type: Spontaneous
  Country: US (occurrence: US)
  Receive Date: 20170428
  Receipt Date: 20170605
  Transmission Date: 20170830
  Serious: Yes (Death, Hospitalization)
  Sender: FDA-Public Use
  Company Number: US-BAUSCH-BL-2017-010829

PATIENT
  Age: 70 Year
  Sex: Male

DRUGS (1)
  1. XIFAXAN [Suspect]
     Active Substance: RIFAXIMIN
     Indication: HEPATIC CIRRHOSIS
     Route: 065
     Dates: start: 20161003

REACTIONS (4)
  - Dehydration [Unknown]
  - Asthenia [Unknown]
  - Liver disorder [Fatal]
  - Disorientation [Unknown]

NARRATIVE: CASE EVENT DATE: 20170418
